FAERS Safety Report 17223539 (Version 1)
Quarter: 2020Q1

REPORT INFORMATION
  Report Type: Spontaneous
  Country: CN (occurrence: CN)
  Receive Date: 20200102
  Receipt Date: 20200102
  Transmission Date: 20200409
  Serious: Yes (Other)
  Sender: FDA-Public Use
  Company Number: CN-VIIV HEALTHCARE LIMITED-CN2019APC236864

PATIENT

DRUGS (1)
  1. TIVICAY [Suspect]
     Active Substance: DOLUTEGRAVIR SODIUM
     Indication: HIV INFECTION
     Dosage: 1 DF, QD(TABLET)
     Route: 048

REACTIONS (3)
  - Blood bilirubin increased [Unknown]
  - Bile duct obstruction [Unknown]
  - Transaminases increased [Unknown]

NARRATIVE: CASE EVENT DATE: 20191230
